FAERS Safety Report 25341564 (Version 5)
Quarter: 2025Q3

REPORT INFORMATION
  Report Type: Report from Study
  Country: US (occurrence: US)
  Receive Date: 20250521
  Receipt Date: 20250822
  Transmission Date: 20251021
  Serious: Yes (Death, Other)
  Sender: SUNOVION
  Company Number: US-SUMITOMO PHARMA SWITZERLAND GMBH-2025SPA004702

PATIENT
  Age: 76 Year
  Sex: Male

DRUGS (13)
  1. ORGOVYX [Suspect]
     Active Substance: RELUGOLIX
     Indication: Prostate cancer
     Dosage: 360 MG, SINGLE
     Route: 048
     Dates: start: 20250318, end: 20250318
  2. ORGOVYX [Suspect]
     Active Substance: RELUGOLIX
     Dosage: 120 MG, QD
     Route: 048
     Dates: start: 20250319
  3. DOFETILIDE [Suspect]
     Active Substance: DOFETILIDE
     Indication: Product used for unknown indication
  4. ATORVASTATIN [Concomitant]
     Active Substance: ATORVASTATIN
  5. BENADRYL [Concomitant]
     Active Substance: DIPHENHYDRAMINE HYDROCHLORIDE
  6. INFLIXIMAB [Concomitant]
     Active Substance: INFLIXIMAB
  7. METOPROLOL [Concomitant]
     Active Substance: METOPROLOL
  8. PREGABALIN [Concomitant]
     Active Substance: PREGABALIN
  9. RAMIPRIL [Concomitant]
     Active Substance: RAMIPRIL
  10. REMICADE [Concomitant]
     Active Substance: INFLIXIMAB
  11. TERAZOSIN [Concomitant]
     Active Substance: TERAZOSIN HYDROCHLORIDE
  12. TYLENOL [Concomitant]
     Active Substance: ACETAMINOPHEN
  13. WARFARIN [Concomitant]
     Active Substance: WARFARIN

REACTIONS (6)
  - Death [Fatal]
  - Atrial fibrillation [Unknown]
  - Drug interaction [Unknown]
  - Hot flush [Unknown]
  - Back pain [Unknown]
  - Product dose omission issue [Recovered/Resolved]
